FAERS Safety Report 24108854 (Version 1)
Quarter: 2024Q3

REPORT INFORMATION
  Report Type: Spontaneous
  Country: US (occurrence: US)
  Receive Date: 20240718
  Receipt Date: 20240718
  Transmission Date: 20241017
  Serious: Yes (Other)
  Sender: RANBAXY
  Company Number: US-SUN PHARMACEUTICAL INDUSTRIES LTD-2024R1-457104

PATIENT

DRUGS (9)
  1. ATORVASTATIN [Suspect]
     Active Substance: ATORVASTATIN
     Indication: Hypertriglyceridaemia
     Dosage: UNK
     Route: 064
  2. FENOFIBRATE [Suspect]
     Active Substance: FENOFIBRATE
     Indication: Hypertriglyceridaemia
     Dosage: UNK
     Route: 064
  3. GEMFIBROZIL [Suspect]
     Active Substance: GEMFIBROZIL
     Indication: Hypertriglyceridaemia
     Dosage: UNK
     Route: 064
  4. INSULIN NOS [Suspect]
     Active Substance: INSULIN NOS
     Indication: Hypertriglyceridaemia
     Dosage: UNK
     Route: 064
  5. METFORMIN [Suspect]
     Active Substance: METFORMIN HYDROCHLORIDE
     Indication: Hypertriglyceridaemia
     Dosage: UNK
     Route: 064
  6. PRAVASTATIN [Suspect]
     Active Substance: PRAVASTATIN
     Indication: Hypertriglyceridaemia
     Dosage: UNK
     Route: 064
  7. PIOGLITAZONE [Suspect]
     Active Substance: PIOGLITAZONE
     Indication: Hypertriglyceridaemia
     Dosage: UNK
     Route: 064
  8. URSODIOL [Suspect]
     Active Substance: URSODIOL
     Indication: Hypertriglyceridaemia
     Dosage: UNK
     Route: 064
  9. OMEGA-3 FATTY ACIDS [Suspect]
     Active Substance: OMEGA-3 FATTY ACIDS
     Indication: Hypertriglyceridaemia
     Dosage: UNK
     Route: 064

REACTIONS (2)
  - Foetal exposure during pregnancy [Unknown]
  - Premature baby [Unknown]
